FAERS Safety Report 8771651 (Version 1)
Quarter: 2012Q4

REPORT INFORMATION
  Report Type: 
  Country: None (occurrence: None)
  Receive Date: 20120905
  Receipt Date: 20120905
  Transmission Date: 20130627
  Serious: Yes (Death)
  Sender: FDA-Public Use
  Company Number: RS-ROCHE-1113444

PATIENT

DRUGS (4)
  1. XELODA [Suspect]
     Indication: BREAST CANCER METASTATIC
     Route: 065
     Dates: start: 2008
  2. 5-FLUOROURACIL [Concomitant]
     Route: 065
     Dates: start: 2007
  3. ADRIAMYCIN [Concomitant]
     Route: 065
     Dates: start: 2007
  4. CYCLOPHOSPHAMIDE [Concomitant]
     Route: 065
     Dates: start: 2007

REACTIONS (1)
  - Death [Fatal]
